FAERS Safety Report 18967380 (Version 1)
Quarter: 2021Q1

REPORT INFORMATION
  Report Type: Spontaneous
  Country: US (occurrence: US)
  Receive Date: 20210303
  Receipt Date: 20210303
  Transmission Date: 20210420
  Serious: No
  Sender: FDA-Public Use
  Company Number: US-AMGEN-USASP2021030557

PATIENT
  Sex: Female

DRUGS (1)
  1. PROLIA [Suspect]
     Active Substance: DENOSUMAB
     Indication: OSTEOPOROSIS
     Dosage: 60 MILLIGRAM, Q6MO
     Route: 065

REACTIONS (6)
  - Diarrhoea [Unknown]
  - Pain [Unknown]
  - Musculoskeletal pain [Unknown]
  - SARS-CoV-2 test positive [Unknown]
  - Toothache [Unknown]
  - Gingival pain [Unknown]
